FAERS Safety Report 9106092 (Version 1)
Quarter: 2013Q1

REPORT INFORMATION
  Report Type: Spontaneous
  Country: ES (occurrence: ES)
  Receive Date: 20130220
  Receipt Date: 20130220
  Transmission Date: 20140127
  Serious: Yes (Other)
  Sender: FDA-Public Use
  Company Number: ES-PFIZER INC-2013060670

PATIENT
  Age: 3 Year
  Sex: Male
  Weight: 15 kg

DRUGS (2)
  1. VORICONAZOLE [Suspect]
  2. VESANOID [Interacting]
     Indication: ACUTE PROMYELOCYTIC LEUKAEMIA

REACTIONS (4)
  - Drug interaction [Unknown]
  - Delirium [Unknown]
  - Hallucination, visual [Unknown]
  - Drug intolerance [Unknown]
